FAERS Safety Report 9501395 (Version 1)
Quarter: 2013Q1

REPORT INFORMATION
  Report Type: Spontaneous
  Country: US (occurrence: None)
  Receive Date: 20130108
  Receipt Date: 20130108
  Transmission Date: 20140127
  Serious: Yes (Other)
  Sender: FDA-Public Use
  Company Number: M-11-027

PATIENT
  Sex: Female

DRUGS (1)
  1. DOXYCYCLINE [Suspect]
     Route: 048

REACTIONS (4)
  - Pruritus [None]
  - Skin burning sensation [None]
  - Dry skin [None]
  - Rash erythematous [None]
